APPROVED DRUG PRODUCT: DIDANOSINE
Active Ingredient: DIDANOSINE
Strength: 10MG/ML
Dosage Form/Route: FOR SOLUTION;ORAL
Application: A078112 | Product #001
Applicant: AUROBINDO PHARMA LTD
Approved: Mar 8, 2007 | RLD: No | RS: No | Type: DISCN